FAERS Safety Report 6700937-4 (Version None)
Quarter: 2010Q2

REPORT INFORMATION
  Report Type: 
  Country: None (occurrence: None)
  Receive Date: 20100428
  Receipt Date: 20100422
  Transmission Date: 20101027
  Serious: Yes (Life-Threatening, Hospitalization, Other)
  Sender: FDA-Public Use
  Company Number: PHHY2010US25517

PATIENT
  Sex: Male

DRUGS (12)
  1. AFINITOR [Suspect]
     Indication: RENAL CELL CARCINOMA
     Dosage: 10 MG, QD
     Route: 048
     Dates: start: 20100401, end: 20100408
  2. INSULIN LISPRO [Concomitant]
     Dosage: UNK
     Dates: start: 20100210
  3. COREG [Concomitant]
     Dosage: UNK
     Dates: start: 20100210
  4. MECLIZINE [Concomitant]
     Dosage: UNK
     Dates: start: 20100210
  5. AVAPRO [Concomitant]
     Dosage: UNK
     Dates: start: 20100210
  6. PEPCID [Concomitant]
     Dosage: UNK
     Dates: start: 20100210
  7. NORVASC [Concomitant]
     Dosage: UNK
     Dates: start: 20100210
  8. LOVAZA [Concomitant]
     Dosage: 1000 MG- 5 UNIT CAP
     Dates: start: 20100210
  9. COUMADIN [Concomitant]
     Dosage: UNK
     Dates: start: 20100210
  10. VITAMIN D [Concomitant]
     Dosage: 5000 UNIT CAP
     Dates: start: 20100210
  11. LASIX [Concomitant]
     Dosage: UNK
     Dates: start: 20100210
  12. TRIPLEX DM [Concomitant]
     Dosage: 12.5 MG-7.5 MG-15 MG/ML
     Route: 048
     Dates: start: 20100210

REACTIONS (12)
  - ARTHRALGIA [None]
  - CARDIAC FAILURE CONGESTIVE [None]
  - DIZZINESS [None]
  - DYSPNOEA [None]
  - FATIGUE [None]
  - HEADACHE [None]
  - NAUSEA [None]
  - OEDEMA [None]
  - OEDEMA PERIPHERAL [None]
  - PAIN [None]
  - RENAL FAILURE ACUTE [None]
  - RESPIRATORY DISTRESS [None]
